FAERS Safety Report 10365291 (Version 3)
Quarter: 2014Q4

REPORT INFORMATION
  Report Type: Spontaneous
  Country: US (occurrence: US)
  Receive Date: 20140806
  Receipt Date: 20141027
  Transmission Date: 20150528
  Serious: No
  Sender: FDA-Public Use
  Company Number: US-PFIZER INC-2014215250

PATIENT
  Age: 48 Year
  Sex: Male

DRUGS (1)
  1. VIAGRA [Suspect]
     Active Substance: SILDENAFIL CITRATE
     Dosage: 100 MG, DAILY AS NEEDED
     Route: 048

REACTIONS (1)
  - Depression [Unknown]
